FAERS Safety Report 5527030-0 (Version None)
Quarter: 2007Q4

REPORT INFORMATION
  Report Type: 
  Country: None (occurrence: None)
  Receive Date: 20071127
  Receipt Date: 20071115
  Transmission Date: 20080405
  Serious: Yes (Other)
  Sender: FDA-Public Use
  Company Number: FR-SANOFI-SYNTHELABO-A02200703222

PATIENT
  Sex: Male
  Weight: 76 kg

DRUGS (4)
  1. XATRAL [Suspect]
     Indication: BLADDER DISTENSION
     Route: 048
     Dates: start: 20071025, end: 20071026
  2. PREVISCAN [Concomitant]
     Dosage: UNK
     Route: 048
  3. NICARDIPINE HCL [Concomitant]
     Dosage: UNK
     Route: 065
     Dates: start: 20071025, end: 20071025
  4. HYPERIUM [Concomitant]
     Route: 048

REACTIONS (1)
  - ATRIAL FIBRILLATION [None]
